FAERS Safety Report 9158563 (Version 6)
Quarter: 2015Q2

REPORT INFORMATION
  Report Type: Report from Study
  Country: US (occurrence: US)
  Receive Date: 20130312
  Receipt Date: 20150428
  Transmission Date: 20150821
  Serious: No
  Sender: FDA-Public Use
  Company Number: US-PFIZER INC-2013083286

PATIENT
  Age: 63 Year
  Sex: Female

DRUGS (2)
  1. NERATINIB [Suspect]
     Active Substance: NERATINIB
     Indication: BREAST CANCER
     Dosage: 240 MG, DAILY
     Route: 048
     Dates: start: 20130208, end: 20130225
  2. TEMSIROLIMUS [Suspect]
     Active Substance: TEMSIROLIMUS
     Indication: BREAST CANCER
     Dosage: 8 MG, WEEKLY
     Route: 042
     Dates: start: 20130208

REACTIONS (4)
  - Dehydration [Recovered/Resolved]
  - Diarrhoea [Recovered/Resolved]
  - Nausea [Recovered/Resolved]
  - Syncope [Recovered/Resolved]

NARRATIVE: CASE EVENT DATE: 20130224
